FAERS Safety Report 24671752 (Version 3)
Quarter: 2025Q1

REPORT INFORMATION
  Report Type: Spontaneous
  Country: SI (occurrence: SI)
  Receive Date: 20241127
  Receipt Date: 20250108
  Transmission Date: 20250409
  Serious: No
  Sender: MYLAN
  Company Number: SI-MYLANLABS-2024M1105518

PATIENT
  Sex: Male

DRUGS (2)
  1. EPIPEN JR [Suspect]
     Active Substance: EPINEPHRINE
     Indication: Anaphylactic reaction
     Route: 065
  2. EPIPEN JR [Suspect]
     Active Substance: EPINEPHRINE
     Route: 065

REACTIONS (2)
  - Liquid product physical issue [None]
  - Product quality issue [None]
